FAERS Safety Report 7819797-3 (Version None)
Quarter: 2011Q4

REPORT INFORMATION
  Report Type: 
  Country: None (occurrence: None)
  Receive Date: 20111018
  Receipt Date: 20110215
  Transmission Date: 20120403
  Serious: No
  Sender: FDA-Public Use
  Company Number: US-ASTRAZENECA-2011SE08762

PATIENT
  Sex: Male

DRUGS (3)
  1. BENAZEPRIL HYDROCHLORIDE [Concomitant]
  2. SYMBICORT [Suspect]
     Indication: ASTHMA
     Dosage: 80/4.5MCG 1 PUFF BID
     Route: 055
     Dates: start: 20110201
  3. ALBUTEROL [Concomitant]

REACTIONS (3)
  - DYSPNOEA [None]
  - URINE FLOW DECREASED [None]
  - NOCTURIA [None]
